FAERS Safety Report 8247033-5 (Version None)
Quarter: 2012Q1

REPORT INFORMATION
  Report Type: 
  Country: None (occurrence: None)
  Receive Date: 20120327
  Receipt Date: 20120313
  Transmission Date: 20120608
  Serious: No
  Sender: FDA-Public Use
  Company Number: TCI2012A01338

PATIENT

DRUGS (2)
  1. GLUFAST (MITIGLINIDE CALCIUM) [Suspect]
     Route: 048
  2. ACTOS [Suspect]
     Route: 048

REACTIONS (1)
  - DRUG ERUPTION [None]
